FAERS Safety Report 15334736 (Version 1)
Quarter: 2018Q3

REPORT INFORMATION
  Report Type: Report from Study
  Country: US (occurrence: US)
  Receive Date: 20180830
  Receipt Date: 20180830
  Transmission Date: 20181010
  Serious: Yes (Hospitalization, Other)
  Sender: FDA-Public Use
  Company Number: US-BAYER-2018-143099

PATIENT
  Age: 47 Year
  Sex: Male

DRUGS (11)
  1. LYRICA [Concomitant]
     Active Substance: PREGABALIN
  2. MIDODRINE [Concomitant]
     Active Substance: MIDODRINE
  3. TENOFOVIR [Concomitant]
     Active Substance: TENOFOVIR
  4. CALCIUM ACETATE. [Concomitant]
     Active Substance: CALCIUM ACETATE
  5. EMTRIVA [Concomitant]
     Active Substance: EMTRICITABINE
  6. OXYCODONE HYDROCHLORIDE. [Concomitant]
     Active Substance: OXYCODONE HYDROCHLORIDE
  7. NEXAVAR [Suspect]
     Active Substance: SORAFENIB
     Indication: HEPATOCELLULAR CARCINOMA
     Dosage: 400 MG, BID
     Route: 048
     Dates: start: 20180724, end: 201808
  8. DOLUTEGRAVIR [Concomitant]
     Active Substance: DOLUTEGRAVIR
  9. AMITRIPTYLINE [Concomitant]
     Active Substance: AMITRIPTYLINE
  10. MIDODRINE HYDROCHLORIDE. [Concomitant]
     Active Substance: MIDODRINE HYDROCHLORIDE
  11. OXYCODONE [Concomitant]
     Active Substance: OXYCODONE

REACTIONS (5)
  - Diabetic neuropathy [Not Recovered/Not Resolved]
  - Dry skin [Not Recovered/Not Resolved]
  - Cardiac disorder [Unknown]
  - Hypotension [Unknown]
  - Diarrhoea [Unknown]

NARRATIVE: CASE EVENT DATE: 201807
